FAERS Safety Report 5289064-3 (Version None)
Quarter: 2007Q1

REPORT INFORMATION
  Report Type: 
  Country: None (occurrence: None)
  Receive Date: 20070118
  Receipt Date: 20061030
  Transmission Date: 20070707
  Serious: Yes (Other)
  Sender: FDA-Public Use
  Company Number: HQWYE014201NOV06

PATIENT
  Age: 55 Year
  Sex: Female
  Weight: 61.29 kg

DRUGS (1)
  1. ADVIL PM [Suspect]
     Indication: INSOMNIA
     Dosage: 2 TABLETS ONCE, ORAL
     Route: 048
     Dates: start: 20061026, end: 20061026

REACTIONS (1)
  - PSYCHOMOTOR HYPERACTIVITY [None]
